FAERS Safety Report 9091997 (Version 1)
Quarter: 2013Q1

REPORT INFORMATION
  Report Type: Spontaneous
  Country: US (occurrence: US)
  Receive Date: 20130131
  Receipt Date: 20130131
  Transmission Date: 20140127
  Serious: Yes (Other)
  Sender: FDA-Public Use
  Company Number: US-PFIZER INC-2013038101

PATIENT
  Sex: Male

DRUGS (3)
  1. GABAPENTIN [Suspect]
     Dosage: 3600 MG, A DAY
  2. LYRICA [Suspect]
     Dosage: 600 MG, UNK
  3. LOXAPINE [Suspect]
     Dosage: 200 MG, UNK

REACTIONS (1)
  - Maculopathy [Unknown]
